FAERS Safety Report 6597793-4 (Version None)
Quarter: 2010Q1

REPORT INFORMATION
  Report Type: 
  Country: None (occurrence: None)
  Receive Date: 20100223
  Receipt Date: 20100217
  Transmission Date: 20100710
  Serious: Yes (Other)
  Sender: FDA-Public Use
  Company Number: MY-ALLERGAN-1002191US

PATIENT
  Age: 37 Year
  Sex: Male

DRUGS (2)
  1. GATIFLOXACIN SESQUIHYDRATE UNK [Suspect]
     Indication: DRUG USE FOR UNKNOWN INDICATION
     Dosage: UNK
     Route: 047
  2. PREDNISOLONE ACETATE SUS [Suspect]
     Indication: DRUG USE FOR UNKNOWN INDICATION
     Dosage: UNK
     Route: 047

REACTIONS (3)
  - CORNEAL EPITHELIUM DEFECT [None]
  - EYE PAIN [None]
  - KERATITIS FUNGAL [None]
